FAERS Safety Report 5558617-7 (Version None)
Quarter: 2007Q4

REPORT INFORMATION
  Report Type: 
  Country: None (occurrence: None)
  Receive Date: 20071214
  Receipt Date: 20071204
  Transmission Date: 20080405
  Serious: Yes (Death, Other)
  Sender: FDA-Public Use
  Company Number: PFIZER INC-2007102657

PATIENT
  Sex: Male

DRUGS (1)
  1. LIPITOR [Suspect]
     Dates: start: 20070101, end: 20070101

REACTIONS (3)
  - HEPATIC CIRRHOSIS [None]
  - MALAISE [None]
  - SEPSIS [None]
